FAERS Safety Report 5187409-6 (Version None)
Quarter: 2006Q4

REPORT INFORMATION
  Report Type: 
  Country: None (occurrence: None)
  Receive Date: 20061214
  Receipt Date: 20061129
  Transmission Date: 20070319
  Serious: Yes (Hospitalization)
  Sender: FDA-Public Use
  Company Number: MEDI-0005173

PATIENT
  Age: 16 Month

DRUGS (4)
  1. SYNAGIS [Suspect]
     Indication: ANTIVIRAL PROPHYLAXIS
     Dosage: SEE IMAGE
     Route: 030
     Dates: start: 20051122, end: 20060217
  2. SYNAGIS [Suspect]
     Indication: ANTIVIRAL PROPHYLAXIS
     Dosage: SEE IMAGE
     Route: 030
     Dates: start: 20051122
  3. SYNAGIS [Suspect]
     Indication: ANTIVIRAL PROPHYLAXIS
     Dosage: SEE IMAGE
     Route: 030
     Dates: start: 20051209
  4. SYNAGIS [Suspect]
     Indication: ANTIVIRAL PROPHYLAXIS
     Dosage: SEE IMAGE
     Route: 030
     Dates: start: 20060120

REACTIONS (3)
  - HYPERTHERMIA [None]
  - VIRAL INFECTION [None]
  - VOMITING [None]
